FAERS Safety Report 8965076 (Version 1)
Quarter: 2012Q4

REPORT INFORMATION
  Report Type: 
  Country: US (occurrence: US)
  Receive Date: 20121213
  Receipt Date: 20121213
  Transmission Date: 20130627
  Serious: No
  Sender: FDA-Public Use
  Company Number: US-BRISTOL-MYERS SQUIBB COMPANY-16490898

PATIENT
  Age: 70 Year
  Sex: Female

DRUGS (3)
  1. PRAVACHOL [Suspect]
     Indication: BLOOD CHOLESTEROL INCREASED
     Route: 048
     Dates: start: 201008
  2. VYTORIN [Suspect]
     Dosage: 1DF:1tablet
  3. ZOCOR [Suspect]
     Dosage: 1DF:1Tablet

REACTIONS (2)
  - Drug intolerance [Unknown]
  - Lipids abnormal [Unknown]
